FAERS Safety Report 5691521-2 (Version None)
Quarter: 2008Q2

REPORT INFORMATION
  Report Type: 
  Country: None (occurrence: None)
  Receive Date: 20080402
  Receipt Date: 20080325
  Transmission Date: 20081010
  Serious: Yes (Other)
  Sender: FDA-Public Use
  Company Number: PHBS2007RU20558

PATIENT
  Age: 65 Year
  Sex: Female

DRUGS (3)
  1. MIACALCIN [Suspect]
     Dosage: 200IU, QD
     Route: 045
     Dates: end: 20071203
  2. BONIVA [Concomitant]
     Dosage: ONCE IN 3 MONTH
     Route: 042
     Dates: end: 20071024
  3. CALCIUM D3 ^STADA^ [Concomitant]

REACTIONS (4)
  - ARTHRALGIA [None]
  - BONE PAIN [None]
  - OSTEOSYNTHESIS [None]
  - SURGERY [None]
